FAERS Safety Report 4333721-X (Version None)
Quarter: 2004Q2

REPORT INFORMATION
  Report Type: 
  Country: None (occurrence: None)
  Receive Date: 20040402
  Receipt Date: 20040322
  Transmission Date: 20050107
  Serious: Yes (Death)
  Sender: FDA-Public Use
  Company Number: 2004019650

PATIENT
  Sex: Male

DRUGS (1)
  1. VIAGRA [Suspect]
     Indication: ERECTILE DYSFUNCTION
     Dosage: 100 MG, ORAL
     Route: 048

REACTIONS (3)
  - CEREBROVASCULAR ACCIDENT [None]
  - MEDICATION ERROR [None]
  - MYOCARDIAL INFARCTION [None]
